FAERS Safety Report 20976946 (Version 2)
Quarter: 2022Q2

REPORT INFORMATION
  Report Type: Report from Study
  Country: US (occurrence: US)
  Receive Date: 20220617
  Receipt Date: 20220630
  Transmission Date: 20220721
  Serious: No
  Sender: FDA-Public Use
  Company Number: US-DSJP-DSU-2022-120711AA

PATIENT
  Sex: Male

DRUGS (2)
  1. PEXIDARTINIB [Suspect]
     Active Substance: PEXIDARTINIB
     Indication: Benign connective tissue neoplasm
     Dosage: 200 MG, BID (FOR 2 WEEKS)
     Route: 048
     Dates: start: 20220527
  2. PEXIDARTINIB [Suspect]
     Active Substance: PEXIDARTINIB
     Indication: Benign connective tissue neoplasm
     Dosage: 200 MG QAM, 400 MG QPM
     Route: 048
     Dates: start: 20220527

REACTIONS (18)
  - Feeling abnormal [Recovered/Resolved]
  - Fatigue [Recovered/Resolved]
  - Neuralgia [Recovered/Resolved]
  - Formication [Recovered/Resolved]
  - Hypoaesthesia [Recovered/Resolved]
  - Paraesthesia [Recovered/Resolved]
  - Pain in extremity [Recovered/Resolved]
  - Joint noise [Recovered/Resolved]
  - Hyperhidrosis [Recovered/Resolved]
  - Oesophageal discomfort [Recovered/Resolved]
  - Memory impairment [Recovered/Resolved]
  - Dizziness postural [Recovered/Resolved]
  - Dizziness exertional [Recovered/Resolved]
  - Musculoskeletal stiffness [Recovered/Resolved]
  - Joint stiffness [Recovered/Resolved]
  - Arthralgia [Recovered/Resolved]
  - Alanine aminotransferase increased [Unknown]
  - Aspartate aminotransferase increased [Unknown]

NARRATIVE: CASE EVENT DATE: 20220101
